FAERS Safety Report 21240103 (Version 1)
Quarter: 2022Q3

REPORT INFORMATION
  Report Type: Spontaneous
  Country: US (occurrence: None)
  Receive Date: 20220821
  Receipt Date: 20220821
  Transmission Date: 20221027
  Serious: Yes (Other)
  Sender: FDA-Public Use
  Company Number: None

PATIENT
  Age: 59 Year
  Sex: Female
  Weight: 56.25 kg

DRUGS (8)
  1. CANNABIDIOL\HERBALS [Suspect]
     Active Substance: CANNABIDIOL\HERBALS
     Indication: Insomnia
     Dosage: OTHER QUANTITY : 1 GUMMY;?FREQUENCY : AT BEDTIME;?
     Route: 048
  2. CANNABIDIOL\HERBALS [Suspect]
     Active Substance: CANNABIDIOL\HERBALS
     Indication: Tension
  3. DEVICE [Concomitant]
     Active Substance: DEVICE
  4. MAGNESIUM [Concomitant]
     Active Substance: MAGNESIUM
  5. MELATONIN [Concomitant]
     Active Substance: MELATONIN
  6. VITAMIN C [Concomitant]
     Active Substance: ASCORBIC ACID
  7. IRON [Concomitant]
     Active Substance: IRON
  8. BENADRYL [Concomitant]
     Active Substance: DIPHENHYDRAMINE HYDROCHLORIDE

REACTIONS (8)
  - Dizziness [None]
  - Hypertension [None]
  - Tremor [None]
  - Muscle spasms [None]
  - Dry mouth [None]
  - Tunnel vision [None]
  - Amnesia [None]
  - Adverse drug reaction [None]

NARRATIVE: CASE EVENT DATE: 20220820
